FAERS Safety Report 17313763 (Version 1)
Quarter: 2020Q1

REPORT INFORMATION
  Report Type: Spontaneous
  Country: US (occurrence: US)
  Receive Date: 20200124
  Receipt Date: 20200124
  Transmission Date: 20200409
  Serious: Yes (Other)
  Sender: FDA-Public Use
  Company Number: NVSC2020US016759

PATIENT
  Sex: Female

DRUGS (2)
  1. TRILEPTAL [Suspect]
     Active Substance: OXCARBAZEPINE
     Indication: EPILEPSY
     Dosage: 300 MG
     Route: 065
  2. LEVETIRACETAM. [Concomitant]
     Active Substance: LEVETIRACETAM
     Indication: EPILEPSY
     Dosage: 600-1200 MGS
     Route: 065

REACTIONS (6)
  - Blood sodium decreased [Unknown]
  - Condition aggravated [Not Recovered/Not Resolved]
  - Seizure [Unknown]
  - Diarrhoea [Unknown]
  - Balance disorder [Unknown]
  - Fatigue [Unknown]
